FAERS Safety Report 20292210 (Version 2)
Quarter: 2022Q1

REPORT INFORMATION
  Report Type: Spontaneous
  Country: CN (occurrence: CN)
  Receive Date: 20220104
  Receipt Date: 20220112
  Transmission Date: 20220423
  Serious: Yes (Hospitalization)
  Sender: FDA-Public Use
  Company Number: CN-SA-SAC20211228000733

PATIENT
  Age: 72 Year
  Sex: Male

DRUGS (10)
  1. ENOXAPARIN SODIUM [Suspect]
     Active Substance: ENOXAPARIN SODIUM
     Indication: Anticoagulant therapy
     Dosage: 0.4 ML
  2. INSULIN NOS [Concomitant]
     Active Substance: INSULIN NOS
  3. ROXADUSTAT [Concomitant]
     Active Substance: ROXADUSTAT
  4. NADROPARIN CALCIUM [Concomitant]
     Active Substance: NADROPARIN CALCIUM
  5. ENTRESTO [Concomitant]
     Active Substance: SACUBITRIL\VALSARTAN
  6. CHOLECALCIFEROL [Concomitant]
     Active Substance: CHOLECALCIFEROL
  7. POLYSACCHARIDE IRON [Concomitant]
  8. POTASSIUM CHLORIDE [Concomitant]
     Active Substance: POTASSIUM CHLORIDE
  9. CARVEDILOL [Concomitant]
     Active Substance: CARVEDILOL
  10. VANCOMYCIN [Concomitant]
     Active Substance: VANCOMYCIN

REACTIONS (4)
  - Chest discomfort [Recovering/Resolving]
  - Wheezing [Recovering/Resolving]
  - Oxygen saturation decreased [Recovering/Resolving]
  - Blood pressure increased [Recovering/Resolving]
